FAERS Safety Report 7095460-4 (Version None)
Quarter: 2010Q4

REPORT INFORMATION
  Report Type: 
  Country: None (occurrence: None)
  Receive Date: 20101111
  Receipt Date: 20101029
  Transmission Date: 20110411
  Serious: No
  Sender: FDA-Public Use
  Company Number: US-B.I. PHARMACEUTICALS,INC./RIDGEFIELD-2010-BP-11646BP

PATIENT
  Sex: Male
  Weight: 72.57 kg

DRUGS (4)
  1. SPIRIVA [Suspect]
     Indication: BRONCHOPULMONARY ASPERGILLOSIS
     Dosage: 18 MCG
     Route: 055
     Dates: start: 20100401
  2. DILACOR XR [Concomitant]
     Indication: HYPERTENSION
  3. ITRACONAZOLE [Concomitant]
     Indication: ASPERGILLOSIS
     Dates: start: 20100601
  4. CRESTOR [Concomitant]
     Indication: BLOOD CHOLESTEROL INCREASED

REACTIONS (3)
  - DRY MOUTH [None]
  - DYSGEUSIA [None]
  - WEIGHT DECREASED [None]
